FAERS Safety Report 5500625-6 (Version None)
Quarter: 2007Q4

REPORT INFORMATION
  Report Type: 
  Country: None (occurrence: None)
  Receive Date: 20071018
  Receipt Date: 20070203
  Transmission Date: 20080405
  Serious: Yes (Other)
  Sender: FDA-Public Use
  Company Number: 2006152608

PATIENT
  Sex: Female
  Weight: 73.5 kg

DRUGS (6)
  1. NEURONTIN [Suspect]
     Indication: NEUROPATHY PERIPHERAL
     Dosage: 1800 MG (600 MG, 3 IN 1 D)
     Dates: start: 20040101
  2. VALSARTAN [Concomitant]
  3. ASPIRIN [Concomitant]
  4. FOLTX (CYANOCOBALAMIN, FOLIC ACID, PYRIDOXINE) [Concomitant]
  5. OMEGA 3 (FISH OIL) [Concomitant]
  6. ALL OTHER THERAPEUTIC PRODUCTS (ALL OTHER THERAPEUTIC PRODUCTS) [Concomitant]

REACTIONS (1)
  - GLAUCOMA [None]
